FAERS Safety Report 7601812-3 (Version None)
Quarter: 2011Q3

REPORT INFORMATION
  Report Type: 
  Country: None (occurrence: None)
  Receive Date: 20110711
  Receipt Date: 20110705
  Transmission Date: 20111222
  Serious: Yes (Congenital Anomaly, Other)
  Sender: FDA-Public Use
  Company Number: US-PFIZER INC-2011151257

PATIENT
  Sex: Male
  Weight: 3.798 kg

DRUGS (1)
  1. ZOLOFT [Suspect]
     Indication: DEPRESSION
     Dosage: 100 MG, 1X/DAY
     Route: 064

REACTIONS (8)
  - TRANSIENT TACHYPNOEA OF THE NEWBORN [None]
  - UMBILICAL HERNIA [None]
  - MUSCLE DISORDER [None]
  - HYPOXIA [None]
  - VOMITING [None]
  - WEIGHT DECREASED [None]
  - MATERNAL EXPOSURE DURING PREGNANCY [None]
  - TALIPES [None]
